FAERS Safety Report 18316685 (Version 1)
Quarter: 2020Q3

REPORT INFORMATION
  Report Type: Report from Study
  Country: None (occurrence: BR)
  Receive Date: 20200928
  Receipt Date: 20200928
  Transmission Date: 20201103
  Serious: Yes (Hospitalization, Other)
  Sender: FDA-Public Use
  Company Number: BR-ABBVIE-20K-020-3578370-00

PATIENT
  Age: 73 Year
  Sex: Male
  Weight: 54.4 kg

DRUGS (1)
  1. HUMIRA [Suspect]
     Active Substance: ADALIMUMAB
     Indication: PSORIATIC ARTHROPATHY
     Route: 058

REACTIONS (9)
  - Abdominal pain [Recovered/Resolved]
  - Intestinal perforation [Unknown]
  - Gastrointestinal neoplasm [Unknown]
  - Blood pressure abnormal [Unknown]
  - Gastrointestinal neoplasm [Unknown]
  - Abdominal adhesions [Recovered/Resolved]
  - Adverse food reaction [Unknown]
  - Gastrointestinal disorder [Unknown]
  - Dyspepsia [Unknown]

NARRATIVE: CASE EVENT DATE: 20200526
